FAERS Safety Report 5779728-7 (Version None)
Quarter: 2008Q2

REPORT INFORMATION
  Report Type: 
  Country: None (occurrence: None)
  Receive Date: 20080617
  Receipt Date: 20080602
  Transmission Date: 20081010
  Serious: Yes (Congenital Anomaly)
  Sender: FDA-Public Use
  Company Number: 2008S1009606

PATIENT
  Age: 21 Week

DRUGS (1)
  1. ENALAPRIL MALEATE [Suspect]
     Indication: DRUG USE FOR UNKNOWN INDICATION
     Dosage: 10 MG; DAILY; TRANSPLACENTAL
     Route: 064

REACTIONS (7)
  - CONGENITAL NOSE MALFORMATION [None]
  - FOETAL GROWTH RETARDATION [None]
  - JAW DISORDER [None]
  - MATERNAL DRUGS AFFECTING FOETUS [None]
  - MULTIPLE CONGENITAL ABNORMALITIES [None]
  - PULMONARY HYPOPLASIA [None]
  - PULMONARY MALFORMATION [None]
